FAERS Safety Report 6382960-5 (Version None)
Quarter: 2009Q3

REPORT INFORMATION
  Report Type: 
  Country: None (occurrence: None)
  Receive Date: 20090930
  Receipt Date: 20090925
  Transmission Date: 20100115
  Serious: Yes (Congenital Anomaly)
  Sender: FDA-Public Use
  Company Number: FR-WYE-G04509609

PATIENT
  Sex: Female

DRUGS (3)
  1. EFFEXOR [Suspect]
     Indication: AGORAPHOBIA
     Route: 064
  2. BRICANYL [Suspect]
     Dosage: 2 INTAKES DURING PREGNANCY
     Route: 064
     Dates: start: 20070101, end: 20070101
  3. XANAX [Suspect]
     Indication: AGORAPHOBIA
     Route: 064

REACTIONS (2)
  - CLEFT LIP AND PALATE [None]
  - DRUG EXPOSURE DURING PREGNANCY [None]
